FAERS Safety Report 6108137-6 (Version None)
Quarter: 2009Q1

REPORT INFORMATION
  Report Type: 
  Country: None (occurrence: None)
  Receive Date: 20090309
  Receipt Date: 20090223
  Transmission Date: 20090719
  Serious: Yes (Other)
  Sender: FDA-Public Use
  Company Number: US-ROCHE-616329

PATIENT
  Age: 55 Year
  Sex: Male

DRUGS (1)
  1. PEGASYS [Suspect]
     Indication: HEPATITIS C
     Dosage: LEFT WITH 3 WEEKS OF TREATMENT
     Route: 065

REACTIONS (8)
  - BALANCE DISORDER [None]
  - CEREBROVASCULAR ACCIDENT [None]
  - FALL [None]
  - LOSS OF CONSCIOUSNESS [None]
  - PERIPHERAL PARALYSIS [None]
  - PULMONARY THROMBOSIS [None]
  - RASH MACULAR [None]
  - RIB FRACTURE [None]
